FAERS Safety Report 13233325 (Version 2)
Quarter: 2019Q4

REPORT INFORMATION
  Report Type: Spontaneous
  Country: KR (occurrence: KR)
  Receive Date: 20170215
  Receipt Date: 20191203
  Transmission Date: 20200122
  Serious: Yes (Life-Threatening, Hospitalization, Other)
  Sender: FDA-Public Use
  Company Number: KR-MACLEODS PHARMACEUTICALS US LTD-MAC2017004314

PATIENT

DRUGS (2)
  1. LEVOCETIRIZINE DIHYDROCHLORIDE 5MG [Suspect]
     Active Substance: LEVOCETIRIZINE DIHYDROCHLORIDE
     Indication: NEURODERMATITIS
     Dosage: 5 MG, QD
     Route: 065
  2. BEPOTASTINE BESILATE [Concomitant]
     Active Substance: BEPOTASTINE BESYLATE
     Indication: NEURODERMATITIS
     Dosage: 10 MG, QD
     Route: 065

REACTIONS (6)
  - Portal tract inflammation [Recovered/Resolved]
  - Hepatitis [Recovered/Resolved]
  - Pruritus [Recovered/Resolved]
  - Jaundice [Recovered/Resolved]
  - Drug-induced liver injury [Recovered/Resolved]
  - Ocular icterus [Recovered/Resolved]
